FAERS Safety Report 9063520 (Version 1)
Quarter: 2013Q1

REPORT INFORMATION
  Report Type: Report from Study
  Country: US (occurrence: US)
  Receive Date: 20130131
  Receipt Date: 20130131
  Transmission Date: 20140127
  Serious: No
  Sender: FDA-Public Use
  Company Number: US-ABBOTT-12P-163-1009481-00

PATIENT
  Age: 49 Year
  Sex: Female

DRUGS (4)
  1. HUMIRA [Suspect]
     Indication: ANKYLOSING SPONDYLITIS
  2. MINOCYCLINE [Concomitant]
     Indication: ANKYLOSING SPONDYLITIS
  3. MICARDIS [Concomitant]
     Indication: HYPERTENSION
  4. MICARDIS [Concomitant]
     Indication: HORMONE REPLACEMENT THERAPY

REACTIONS (1)
  - Tooth abscess [Not Recovered/Not Resolved]
